FAERS Safety Report 6872386-X (Version None)
Quarter: 2010Q3

REPORT INFORMATION
  Report Type: 
  Country: None (occurrence: None)
  Receive Date: 20100723
  Receipt Date: 20080923
  Transmission Date: 20110219
  Serious: No
  Sender: FDA-Public Use
  Company Number: US-PFIZER INC-2008082028

PATIENT
  Sex: Female
  Weight: 61.4 kg

DRUGS (3)
  1. CHANTIX [Suspect]
     Indication: SMOKING CESSATION THERAPY
     Dates: start: 20080908
  2. FENTANYL [Concomitant]
  3. HYDROMORPHONE [Concomitant]
     Indication: BACK PAIN

REACTIONS (3)
  - ABNORMAL DREAMS [None]
  - VOMITING [None]
  - WEIGHT DECREASED [None]
